FAERS Safety Report 5636775-3 (Version None)
Quarter: 2008Q1

REPORT INFORMATION
  Report Type: 
  Country: None (occurrence: None)
  Receive Date: 20080219
  Receipt Date: 20080219
  Transmission Date: 20080703
  Serious: No
  Sender: FDA-Public Use
  Company Number: None

PATIENT
  Age: 62 Year
  Sex: Male

DRUGS (1)
  1. LISINOPRIL [Suspect]
     Dosage: 20MG EVERY DAY PO
     Route: 048
     Dates: start: 20030715, end: 20071025

REACTIONS (1)
  - ANGIOEDEMA [None]
